FAERS Safety Report 17543769 (Version 6)
Quarter: 2021Q4

REPORT INFORMATION
  Report Type: Spontaneous
  Country: US (occurrence: US)
  Receive Date: 20200316
  Receipt Date: 20211209
  Transmission Date: 20220303
  Serious: No
  Sender: FDA-Public Use
  Company Number: US-BIOGEN-2020BI00839628

PATIENT
  Age: 42 Year
  Sex: Female
  Weight: 97.2 kg

DRUGS (8)
  1. TECFIDERA [Suspect]
     Active Substance: DIMETHYL FUMARATE
     Indication: Multiple sclerosis
     Dosage: STARTING DOSE?TECFIDERA TAKE ONE CAPSULE [120MG] BY MOUTH TWICE  DAILY FOR 7 DAYS [BEGAN 02/04/20...
     Route: 048
     Dates: start: 20200204, end: 20200210
  2. TECFIDERA [Suspect]
     Active Substance: DIMETHYL FUMARATE
     Dosage: MAINTENANCE DOSE.?TECFIDERA TAKE ONE CAPSULE [120MG] BY MOUTH TWICE  DAILY FOR 7 DAYS [BEGAN 02/0...
     Route: 048
     Dates: start: 20200211
  3. TECFIDERA [Suspect]
     Active Substance: DIMETHYL FUMARATE
     Route: 065
     Dates: start: 20200131
  4. TECFIDERA [Suspect]
     Active Substance: DIMETHYL FUMARATE
     Dosage: STARTING DOSE
     Route: 065
     Dates: start: 20200131
  5. TECFIDERA [Suspect]
     Active Substance: DIMETHYL FUMARATE
     Dosage: MAINTENANCE DOSE
     Route: 065
  6. DIAZEPAM [Concomitant]
     Active Substance: DIAZEPAM
     Route: 048
  7. MAXIT [Concomitant]
     Route: 048
  8. MOMETASONE [Concomitant]
     Active Substance: MOMETASONE
     Dosage: 0.1%
     Route: 061

REACTIONS (12)
  - Extra dose administered [Not Recovered/Not Resolved]
  - Product dose omission issue [Unknown]
  - Abdominal distension [Unknown]
  - Thirst [Not Recovered/Not Resolved]
  - COVID-19 [Not Recovered/Not Resolved]
  - Weight increased [Recovered/Resolved]
  - Dyspnoea [Unknown]
  - Hot flush [Unknown]
  - Diarrhoea [Unknown]
  - Nausea [Unknown]
  - Gastrointestinal disorder [Unknown]
  - Abdominal pain [Recovered/Resolved]

NARRATIVE: CASE EVENT DATE: 20200206
